FAERS Safety Report 23932544 (Version 1)
Quarter: 2024Q2

REPORT INFORMATION
  Report Type: Spontaneous
  Country: BR (occurrence: BR)
  Receive Date: 20240603
  Receipt Date: 20240603
  Transmission Date: 20240716
  Serious: Yes (Hospitalization)
  Sender: FDA-Public Use
  Company Number: BR-MYLANLABS-2024M1049136

PATIENT
  Age: 46 Year
  Sex: Male

DRUGS (12)
  1. APIXABAN [Interacting]
     Active Substance: APIXABAN
     Indication: Thrombosis prophylaxis
     Dosage: 5 MILLIGRAM, BID
     Route: 048
  2. OSELTAMIVIR [Interacting]
     Active Substance: OSELTAMIVIR
     Indication: Evidence based treatment
     Dosage: UNK; STARTED IN MARCH
     Route: 065
  3. LOPINAVIR\RITONAVIR [Interacting]
     Active Substance: LOPINAVIR\RITONAVIR
     Indication: COVID-19 pneumonia
     Dosage: UNK
     Route: 065
  4. HYDROXYCHLOROQUINE [Concomitant]
     Active Substance: HYDROXYCHLOROQUINE
     Indication: COVID-19 pneumonia
     Dosage: 800 MILLIGRAM; FIRST DAY; STARTED IN MARCH ON THE DAY AFTER HOSPITALISATION
     Route: 065
  5. HYDROXYCHLOROQUINE [Concomitant]
     Active Substance: HYDROXYCHLOROQUINE
     Dosage: 400 MILLIGRAM; SUBSEQUENT DAYS; MARCH
     Route: 065
  6. CLARITHROMYCIN [Concomitant]
     Active Substance: CLARITHROMYCIN
     Indication: COVID-19 pneumonia
     Dosage: 500 MILLIGRAM, BID
     Route: 065
  7. METHYLPREDNISOLONE [Concomitant]
     Active Substance: METHYLPREDNISOLONE
     Indication: COVID-19 pneumonia
     Dosage: 40 MILLIGRAM, BID; STARTED IN MARCH, ON DAY 5 OF HOSPITALISATION
     Route: 065
  8. LOSARTAN [Concomitant]
     Active Substance: LOSARTAN
     Indication: Hypertension
     Dosage: 50 MILLIGRAM, QD
     Route: 065
  9. METFORMIN [Concomitant]
     Active Substance: METFORMIN HYDROCHLORIDE
     Indication: Diabetes mellitus
     Dosage: 1000 MILLIGRAM, QD
     Route: 065
  10. METOPROLOL [Concomitant]
     Active Substance: METOPROLOL
     Indication: Atrial fibrillation
     Dosage: 50 MILLIGRAM, BID
     Route: 065
  11. TAZOBACTAM [Concomitant]
     Active Substance: TAZOBACTAM
     Indication: Evidence based treatment
     Dosage: UNK
     Route: 065
  12. LINEZOLID [Concomitant]
     Active Substance: LINEZOLID
     Indication: Evidence based treatment
     Dosage: UNK
     Route: 065

REACTIONS (3)
  - Drug ineffective [Unknown]
  - Drug interaction [Unknown]
  - Drug level changed [Unknown]
